FAERS Safety Report 8136775-8 (Version None)
Quarter: 2012Q1

REPORT INFORMATION
  Report Type: 
  Country: None (occurrence: None)
  Receive Date: 20120214
  Receipt Date: 20120206
  Transmission Date: 20120608
  Serious: Yes (Other)
  Sender: FDA-Public Use
  Company Number: US-PFIZER INC-2012032380

PATIENT
  Sex: Female
  Weight: 100 kg

DRUGS (1)
  1. LEVOXYL [Suspect]
     Indication: HYPOTHYROIDISM
     Dosage: 150 UG, DAILY
     Dates: start: 20090101

REACTIONS (3)
  - CONDITION AGGRAVATED [None]
  - JOINT DISLOCATION [None]
  - COELIAC DISEASE [None]
